FAERS Safety Report 8222929-9 (Version None)
Quarter: 2012Q1

REPORT INFORMATION
  Report Type: 
  Country: None (occurrence: None)
  Receive Date: 20120320
  Receipt Date: 20120312
  Transmission Date: 20120608
  Serious: Yes (Disabling)
  Sender: FDA-Public Use
  Company Number: PHEH2012US005996

PATIENT
  Sex: Male
  Weight: 158 kg

DRUGS (1)
  1. RECLAST [Suspect]
     Indication: OSTEOPOROSIS
     Dosage: 5 MG, UNK
     Route: 042
     Dates: start: 20110111

REACTIONS (10)
  - FOREIGN BODY SENSATION IN EYES [None]
  - VISION BLURRED [None]
  - READING DISORDER [None]
  - NIGHT BLINDNESS [None]
  - CATARACT [None]
  - VISUAL ACUITY REDUCED [None]
  - VISUAL IMPAIRMENT [None]
  - DRY EYE [None]
  - DIPLOPIA [None]
  - EYE INFLAMMATION [None]
